FAERS Safety Report 8832179 (Version 2)
Quarter: 2013Q4

REPORT INFORMATION
  Report Type: Spontaneous
  Country: US (occurrence: US)
  Receive Date: 20121009
  Receipt Date: 20131101
  Transmission Date: 20140711
  Serious: No
  Sender: FDA-Public Use
  Company Number: US-009507513-1209USA010693

PATIENT
  Sex: Female

DRUGS (3)
  1. ZOCOR [Suspect]
     Dosage: UNK
     Route: 048
  2. VITAMINS (UNSPECIFIED) [Concomitant]
  3. CALCIUM (UNSPECIFIED) [Concomitant]

REACTIONS (1)
  - Hair colour changes [Not Recovered/Not Resolved]
